FAERS Safety Report 10162141 (Version 1)
Quarter: 2014Q2

REPORT INFORMATION
  Report Type: Spontaneous
  Country: US (occurrence: None)
  Receive Date: 20140508
  Receipt Date: 20140508
  Transmission Date: 20141212
  Serious: Yes (Hospitalization)
  Sender: FDA-Public Use
  Company Number: None

PATIENT
  Age: 57 Year
  Sex: Male
  Weight: 71.4 kg

DRUGS (2)
  1. CARBOPLATIN [Suspect]
     Dates: start: 20140331
  2. PACLITAXEL (TAXOL) [Suspect]
     Dates: start: 20140331

REACTIONS (2)
  - Pneumonia [None]
  - Radiation pneumonitis [None]
